FAERS Safety Report 5680814-0 (Version None)
Quarter: 2008Q1

REPORT INFORMATION
  Report Type: 
  Country: None (occurrence: None)
  Receive Date: 20080326
  Receipt Date: 20080324
  Transmission Date: 20080703
  Serious: Yes (Other)
  Sender: FDA-Public Use
  Company Number: TR-BOEHRINGER INGELHEIM GMBH, GERMANY-2008-BP-04510RO

PATIENT
  Age: 55 Year
  Sex: Female

DRUGS (3)
  1. AZATHIOPRINE [Suspect]
     Indication: CROHN'S DISEASE
  2. STEROIDS [Suspect]
     Indication: CROHN'S DISEASE
  3. PENICILLIN G [Concomitant]
     Indication: ACTINOMYCOSIS
     Route: 042

REACTIONS (2)
  - ACTINOMYCOSIS [None]
  - UTERINE RUPTURE [None]
